FAERS Safety Report 5055463-8 (Version None)
Quarter: 2006Q3

REPORT INFORMATION
  Report Type: 
  Country: None (occurrence: None)
  Receive Date: 20060714
  Receipt Date: 20060629
  Transmission Date: 20061208
  Serious: Yes (Other)
  Sender: FDA-Public Use
  Company Number: 2005S1009985

PATIENT
  Age: 6 Year
  Sex: Female

DRUGS (9)
  1. MERCAPTAMINE BITARTRATE (MERCAPTAMINE BITARTRATE) (150 MG) [Suspect]
     Indication: CYSTINOSIS
     Dosage: 90 MG/KG; QD; ORAL
     Route: 048
     Dates: start: 20011007
  2. INDOMETHACIN [Concomitant]
  3. OMEPRAZOLE [Concomitant]
  4. POTASSIUM [Concomitant]
  5. SODIUM BICARBONATE [Concomitant]
  6. ERGOCALCIFEROL [Concomitant]
  7. SODIUM BICARBONATE/POTASSIUM BICARBONATE/SODIUM [Concomitant]
  8. PHOSPHATE MONOBASIC (ANHYDRATE) [Concomitant]
  9. L-CARNITINE [Concomitant]

REACTIONS (5)
  - ARTHRALGIA [None]
  - BONE DENSITY DECREASED [None]
  - FEMUR FRACTURE [None]
  - MUSCULOSKELETAL PAIN [None]
  - TRAUMATIC FRACTURE [None]
